FAERS Safety Report 6317870-2 (Version None)
Quarter: 2009Q3

REPORT INFORMATION
  Report Type: 
  Country: None (occurrence: None)
  Receive Date: 20090821
  Receipt Date: 20090812
  Transmission Date: 20100115
  Serious: Yes (Death)
  Sender: FDA-Public Use
  Company Number: US-PFIZER INC-2009256294

PATIENT
  Age: 69 Year
  Sex: Male
  Weight: 85.714 kg

DRUGS (1)
  1. NICOTROL [Suspect]
     Indication: SMOKING CESSATION THERAPY

REACTIONS (1)
  - EMPHYSEMA [None]
